FAERS Safety Report 18195266 (Version 3)
Quarter: 2020Q4

REPORT INFORMATION
  Report Type: Spontaneous
  Country: PL (occurrence: PL)
  Receive Date: 20200825
  Receipt Date: 20201019
  Transmission Date: 20210113
  Serious: Yes (Hospitalization, Other)
  Sender: FDA-Public Use
  Company Number: PL-MYLANLABS-2020M1072755

PATIENT
  Age: 56 Year
  Sex: Female

DRUGS (15)
  1. WARFARIN [Interacting]
     Active Substance: WARFARIN
     Indication: ATRIAL FIBRILLATION
     Dosage: UNK
  2. PARACETAMOL [Interacting]
     Active Substance: ACETAMINOPHEN
     Indication: ANALGESIC THERAPY
     Dosage: 1 GRAM, QID
     Route: 048
  3. WARFARIN [Interacting]
     Active Substance: WARFARIN
     Dosage: 200 MILLIGRAM, QD
  4. NORFLOXACIN [Interacting]
     Active Substance: NORFLOXACIN
     Indication: URINARY TRACT INFECTION
  5. AMIODARONE [Interacting]
     Active Substance: AMIODARONE
     Dosage: 200 MILLIGRAM, QD
     Route: 065
  6. CYCLONAMINE [Suspect]
     Active Substance: ETHAMSYLATE
     Indication: GENITAL HAEMORRHAGE
     Dosage: UNK
     Route: 065
  7. AGOMELATINE [Interacting]
     Active Substance: AGOMELATINE
     Dosage: 50 MILLIGRAM, QD
     Route: 065
  8. PARACETAMOL [Interacting]
     Active Substance: ACETAMINOPHEN
     Indication: BACK PAIN
     Dosage: 1 GRAM, Q6H (4X1G)
     Route: 048
  9. NORFLOXACIN [Interacting]
     Active Substance: NORFLOXACIN
     Indication: ESCHERICHIA URINARY TRACT INFECTION
     Dosage: 400 MILLIGRAM, BID
     Route: 048
  10. AMIODARONE [Interacting]
     Active Substance: AMIODARONE
     Indication: ATRIAL FIBRILLATION
     Dosage: UNK
     Route: 048
  11. PARACETAMOL [Interacting]
     Active Substance: ACETAMINOPHEN
     Indication: SPINAL PAIN
  12. AGOMELATINE [Suspect]
     Active Substance: AGOMELATINE
     Indication: DEPRESSION
     Dosage: UNK
     Route: 048
  13. WARFARIN [Interacting]
     Active Substance: WARFARIN
     Dosage: DOSE ADJUSTED TO VALUE OF INTERNATIONAL NORMALISED RATIO
     Route: 065
  14. WARFARIN [Interacting]
     Active Substance: WARFARIN
     Dosage: 200 MILLIGRAM, QD,DOSE ADJUSTED TO VALUE OF INTERNATIONAL NORMALISED RATIO
  15. NORFLOXACIN [Interacting]
     Active Substance: NORFLOXACIN
     Indication: CYSTITIS

REACTIONS (18)
  - Vaginal haemorrhage [Unknown]
  - Contraindicated product administered [Recovered/Resolved]
  - Genital discharge [Unknown]
  - Back pain [Unknown]
  - Inadequate analgesia [Unknown]
  - Drug interaction [Unknown]
  - Fatigue [Unknown]
  - Labelled drug-drug interaction medication error [Unknown]
  - International normalised ratio increased [Unknown]
  - Depression [Unknown]
  - Spinal pain [Unknown]
  - Anticoagulation drug level increased [Unknown]
  - Genital haemorrhage [Unknown]
  - Escherichia urinary tract infection [Unknown]
  - Haemorrhage [Unknown]
  - Drug ineffective [Unknown]
  - Haemorrhagic diathesis [Unknown]
  - Drug level increased [Unknown]

NARRATIVE: CASE EVENT DATE: 2020
